FAERS Safety Report 22692890 (Version 2)
Quarter: 2024Q3

REPORT INFORMATION
  Report Type: Spontaneous
  Country: US (occurrence: US)
  Receive Date: 20230711
  Receipt Date: 20240722
  Transmission Date: 20241017
  Serious: Yes (Other)
  Sender: ASTELLAS
  Company Number: US-ASTELLAS-2023US008542

PATIENT
  Age: 84 Year
  Sex: Female

DRUGS (2)
  1. MYRBETRIQ [Interacting]
     Active Substance: MIRABEGRON
     Indication: Product used for unknown indication
     Route: 065
     Dates: start: 20230311, end: 20230311
  2. METOPROLOL [Interacting]
     Active Substance: METOPROLOL
     Indication: Product used for unknown indication
     Dosage: UNK UNK, UNKNOWN FREQ.
     Route: 065

REACTIONS (3)
  - Blood pressure increased [Unknown]
  - Heart rate increased [Unknown]
  - Drug interaction [Unknown]

NARRATIVE: CASE EVENT DATE: 20230311
